FAERS Safety Report 5400013-7 (Version None)
Quarter: 2007Q3

REPORT INFORMATION
  Report Type: 
  Country: None (occurrence: None)
  Receive Date: 20070725
  Receipt Date: 20070705
  Transmission Date: 20080115
  Serious: Yes (Other)
  Sender: FDA-Public Use
  Company Number: 2007001138

PATIENT
  Age: 72 Year
  Sex: Male
  Weight: 82 kg

DRUGS (2)
  1. MACUGEN [Suspect]
     Indication: MACULAR DEGENERATION
     Dosage: (Q6WKS), INTRAVENOUS
     Route: 042
     Dates: start: 20070301, end: 20070401
  2. IBUPROFEN [Concomitant]

REACTIONS (5)
  - DRUG INEFFECTIVE [None]
  - EYE PAIN [None]
  - INJECTION SITE PAIN [None]
  - NAUSEA [None]
  - PRESYNCOPE [None]
